FAERS Safety Report 6646726-0 (Version None)
Quarter: 2010Q1

REPORT INFORMATION
  Report Type: 
  Country: None (occurrence: None)
  Receive Date: 20100317
  Receipt Date: 20100302
  Transmission Date: 20100710
  Serious: Yes (Hospitalization)
  Sender: FDA-Public Use
  Company Number: 2010000105

PATIENT
  Age: 52 Year
  Sex: Female

DRUGS (15)
  1. ERLOTINIB HYDROCHLORIDE [Suspect]
     Indication: GLIOBLASTOMA
     Dosage: 150 MG, ORAL; 100 MG, QD, ORAL
     Route: 048
     Dates: start: 20091103, end: 20091207
  2. ERLOTINIB HYDROCHLORIDE [Suspect]
     Indication: GLIOBLASTOMA
     Dosage: 150 MG, ORAL; 100 MG, QD, ORAL
     Route: 048
     Dates: start: 20091116, end: 20091207
  3. BEVACIZUMAB [Suspect]
     Indication: GLIOBLASTOMA
     Dosage: GLIOBLASTOMA
     Dates: start: 20091113, end: 20091208
  4. TEMOZOLOMIDE [Suspect]
     Indication: GLIOBLASTOMA
     Dosage: 75 MG/M2, ORAL
     Route: 048
     Dates: start: 20091103, end: 20091209
  5. NEUPOGEN [Suspect]
  6. KEPPRA [Concomitant]
  7. CELEXA [Concomitant]
  8. PRILOSEC [Concomitant]
  9. BACTRIM [Concomitant]
  10. SENOKOT [Concomitant]
  11. BENADRYL [Concomitant]
  12. AMBIEN [Concomitant]
  13. HYDROCORTONE [Concomitant]
  14. ZOFRAN [Concomitant]
  15. VICODIN [Concomitant]

REACTIONS (5)
  - HERPES SIMPLEX [None]
  - LYMPHOPENIA [None]
  - OESOPHAGEAL INFECTION [None]
  - OROPHARYNGEAL PAIN [None]
  - PANCYTOPENIA [None]
